FAERS Safety Report 4920328-6 (Version None)
Quarter: 2006Q1

REPORT INFORMATION
  Report Type: 
  Country: None (occurrence: None)
  Receive Date: 20060217
  Receipt Date: 20060208
  Transmission Date: 20060701
  Serious: Yes (Hospitalization)
  Sender: FDA-Public Use
  Company Number: GXKR2006IT00866

PATIENT
  Age: 56 Year
  Sex: Male

DRUGS (1)
  1. MEFLOQUINE (NGX)(MEFLOQUINE) TABLET [Suspect]
     Indication: MALARIA PROPHYLAXIS
     Dosage: 250 MG,QW

REACTIONS (14)
  - ANAEMIA [None]
  - ANISOCYTOSIS [None]
  - ANOREXIA [None]
  - ASTHENIA [None]
  - CONFUSIONAL STATE [None]
  - LETHARGY [None]
  - LEUKOCYTOSIS [None]
  - LOW DENSITY LIPOPROTEIN INCREASED [None]
  - MYALGIA [None]
  - NEUTROPHIL COUNT INCREASED [None]
  - OCULAR ICTERUS [None]
  - PLASMAPHERESIS [None]
  - THROMBOTIC THROMBOCYTOPENIC PURPURA [None]
  - VISION BLURRED [None]
